FAERS Safety Report 6163050-3 (Version None)
Quarter: 2009Q2

REPORT INFORMATION
  Report Type: 
  Country: None (occurrence: None)
  Receive Date: 20090422
  Receipt Date: 20090409
  Transmission Date: 20091009
  Serious: Yes (Disabling)
  Sender: FDA-Public Use
  Company Number: GB-RANBAXY-2009RR-23476

PATIENT
  Age: 58 Year
  Sex: Male
  Weight: 107.7 kg

DRUGS (10)
  1. SIMVASTATIN [Suspect]
     Indication: HYPERLIPIDAEMIA
     Dosage: 40 MG, UNK
     Route: 048
  2. BYETTA [Suspect]
     Indication: DIABETES MELLITUS
     Dosage: 10 MG, UNK
     Route: 058
     Dates: start: 20080424
  3. AMLODIPINE [Concomitant]
     Dosage: 5 MG, QD
  4. ASPIRIN [Concomitant]
     Dosage: 75 MG, QD
  5. GABAPENTIN [Concomitant]
     Dosage: 300 MG, TID
  6. IRBERSARTAN [Concomitant]
     Dosage: 300 MG, QD
  7. LANTUS [Concomitant]
     Dosage: 60 IU, QD
  8. METFORMIN HCL [Concomitant]
     Dosage: 500 MG, BID
  9. INDAPAMIDE [Concomitant]
     Dosage: 1.5 MG, QD
  10. PANTOPRAZOLE SODIUM [Concomitant]
     Dosage: 20 MG, QD

REACTIONS (3)
  - PAIN IN EXTREMITY [None]
  - TENDERNESS [None]
  - THROMBOSIS [None]
